FAERS Safety Report 6995118-3 (Version None)
Quarter: 2010Q3

REPORT INFORMATION
  Report Type: 
  Country: None (occurrence: None)
  Receive Date: 20100917
  Receipt Date: 20090702
  Transmission Date: 20110219
  Serious: Yes (Other)
  Sender: FDA-Public Use
  Company Number: US-WYE-H03982308

PATIENT
  Sex: Female
  Weight: 74.46 kg

DRUGS (4)
  1. PREMPRO [Suspect]
     Indication: MENOPAUSE
     Dosage: UNKNOWN
     Route: 048
  2. ESTRATEST [Suspect]
     Indication: MENOPAUSE
     Dosage: UNKNOWN
     Route: 048
     Dates: start: 20000101
  3. ESTRATAB [Suspect]
     Indication: MENOPAUSE
     Dosage: UNKNOWN
     Route: 048
     Dates: start: 19980101
  4. PREMARIN [Suspect]
     Indication: ARTIFICIAL MENOPAUSE
     Dosage: UNKNOWN
     Route: 048

REACTIONS (1)
  - BREAST CANCER [None]
